FAERS Safety Report 22151666 (Version 2)
Quarter: 2023Q2

REPORT INFORMATION
  Report Type: Report from Study
  Country: TR (occurrence: None)
  Receive Date: 20230329
  Receipt Date: 20230607
  Transmission Date: 20230721
  Serious: Yes (Life-Threatening, Hospitalization)
  Sender: FDA-Public Use
  Company Number: TR-ROCHE-3316842

PATIENT
  Age: 63 Year
  Sex: Female

DRUGS (30)
  1. PLACEBO [Suspect]
     Active Substance: UNSPECIFIED INGREDIENT
     Indication: Diffuse large B-cell lymphoma
     Route: 048
     Dates: start: 20161028, end: 20161215
  2. RITUXIMAB [Suspect]
     Active Substance: RITUXIMAB
     Indication: Diffuse large B-cell lymphoma
     Route: 041
     Dates: start: 20161028, end: 20161202
  3. DOXORUBICIN [Suspect]
     Active Substance: DOXORUBICIN
     Indication: Diffuse large B-cell lymphoma
     Route: 042
     Dates: start: 20161028, end: 20161203
  4. CYCLOPHOSPHAMIDE [Suspect]
     Active Substance: CYCLOPHOSPHAMIDE
     Indication: Diffuse large B-cell lymphoma
     Route: 042
     Dates: start: 20161028, end: 20161203
  5. VINCRISTINE [Suspect]
     Active Substance: VINCRISTINE
     Indication: Diffuse large B-cell lymphoma
     Route: 042
     Dates: start: 20161028, end: 20161203
  6. PREDNISONE [Suspect]
     Active Substance: PREDNISONE
     Indication: Diffuse large B-cell lymphoma
     Route: 048
     Dates: start: 20161028, end: 20161205
  7. ENOXAPARIN SODIUM [Concomitant]
     Active Substance: ENOXAPARIN SODIUM
  8. BACTRIM [Concomitant]
     Active Substance: SULFAMETHOXAZOLE\TRIMETHOPRIM
  9. FENTANYL [Concomitant]
     Active Substance: FENTANYL
  10. MEROPENEM [Concomitant]
     Active Substance: MEROPENEM
  11. KOPAQ [Concomitant]
  12. PAROL [Concomitant]
     Active Substance: ACETAMINOPHEN
  13. PANTOPRAZOLE SODIUM [Concomitant]
     Active Substance: PANTOPRAZOLE SODIUM
  14. CERNEVIT [Concomitant]
     Active Substance: VITAMINS
  15. DIASIP [Concomitant]
  16. ELECTROLYTES NOS\MINERALS [Concomitant]
     Active Substance: ELECTROLYTES NOS\MINERALS
  17. SISTRAL [Concomitant]
  18. AFUNDAS L [Concomitant]
  19. NYSTATIN [Concomitant]
     Active Substance: NYSTATIN
  20. TARGOCID [Concomitant]
     Active Substance: TEICOPLANIN
  21. AMIKETEM [Concomitant]
  22. COLISTIN [Concomitant]
     Active Substance: COLISTIN
  23. MEROSID [Concomitant]
  24. SILANEM [Concomitant]
  25. POTASSIUM CHLORIDE [Concomitant]
     Active Substance: POTASSIUM CHLORIDE
  26. CARDENOR [Concomitant]
  27. EMETRIL [Concomitant]
  28. FUROSEMIDE [Concomitant]
     Active Substance: FUROSEMIDE
  29. MAGNESIUM SULFATE [Concomitant]
     Active Substance: MAGNESIUM SULFATE
  30. PROSURE POWDER [Concomitant]

REACTIONS (2)
  - Large intestine perforation [Recovered/Resolved]
  - Enterocutaneous fistula [Not Recovered/Not Resolved]

NARRATIVE: CASE EVENT DATE: 20161028
